FAERS Safety Report 11666850 (Version 2)
Quarter: 2015Q4

REPORT INFORMATION
  Report Type: Report from Study
  Country: US (occurrence: US)
  Receive Date: 20151027
  Receipt Date: 20151029
  Transmission Date: 20160304
  Serious: Yes (Other)
  Sender: FDA-Public Use
  Company Number: PHEH2014US016076

PATIENT
  Age: 74 Year
  Sex: Female

DRUGS (2)
  1. EXJADE [Suspect]
     Active Substance: DEFERASIROX
     Indication: MYELODYSPLASTIC SYNDROME
     Dosage: 1750 MG, QD
     Route: 048
  2. EXJADE [Suspect]
     Active Substance: DEFERASIROX
     Dosage: 2250 MG, QD
     Route: 048

REACTIONS (4)
  - Influenza like illness [Recovering/Resolving]
  - Diarrhoea [Unknown]
  - Arthralgia [Unknown]
  - Renal failure [Unknown]

NARRATIVE: CASE EVENT DATE: 20141126
